FAERS Safety Report 19770017 (Version 1)
Quarter: 2021Q3

REPORT INFORMATION
  Report Type: Spontaneous
  Country: US (occurrence: US)
  Receive Date: 20210901
  Receipt Date: 20210901
  Transmission Date: 20211014
  Serious: Yes (Death)
  Sender: FDA-Public Use
  Company Number: US-GW PHARMA-202108USGW04095

PATIENT

DRUGS (1)
  1. EPIDIOLEX [Suspect]
     Active Substance: CANNABIDIOL
     Indication: SEIZURE
     Dosage: 330 MILLIGRAM (3.3 ML)
     Route: 048
     Dates: start: 20190219, end: 20210726

REACTIONS (1)
  - Death [Fatal]

NARRATIVE: CASE EVENT DATE: 20210817
